FAERS Safety Report 5913614-4 (Version None)
Quarter: 2008Q4

REPORT INFORMATION
  Report Type: 
  Country: None (occurrence: None)
  Receive Date: 20081009
  Receipt Date: 20080929
  Transmission Date: 20090506
  Serious: Yes (Life-Threatening, Hospitalization)
  Sender: FDA-Public Use
  Company Number: FR-JNJFOC-20081000241

PATIENT
  Age: 51 Year
  Sex: Female

DRUGS (6)
  1. REMICADE [Suspect]
     Indication: SARCOIDOSIS
     Route: 042
  2. METHOTREXATE SODIUM [Suspect]
     Indication: SARCOIDOSIS
     Route: 030
  3. ENDOXAN [Suspect]
     Indication: SARCOIDOSIS
     Route: 042
  4. CELLCEPT [Suspect]
     Indication: SARCOIDOSIS
     Dosage: DOSE VARIED FROM 500 TO 2000 MG DAILY
     Route: 048
  5. HUMIRA [Suspect]
     Indication: SARCOIDOSIS
     Route: 058
  6. CORTANCYL [Concomitant]
     Indication: SARCOIDOSIS

REACTIONS (3)
  - EPSTEIN-BARR VIRUS INFECTION [None]
  - NASAL CAVITY CANCER [None]
  - SARCOIDOSIS [None]
